FAERS Safety Report 20568672 (Version 1)
Quarter: 2022Q1

REPORT INFORMATION
  Report Type: Report from Study
  Country: CO (occurrence: CO)
  Receive Date: 20220308
  Receipt Date: 20220308
  Transmission Date: 20220423
  Serious: Yes (Other)
  Sender: FDA-Public Use
  Company Number: CO-ASTELLAS-2021US037600

PATIENT
  Age: 87 Year
  Sex: Male

DRUGS (3)
  1. ENZALUTAMIDE [Suspect]
     Active Substance: ENZALUTAMIDE
     Indication: Hormone-refractory prostate cancer
     Route: 048
     Dates: start: 20201229
  2. ENZALUTAMIDE [Suspect]
     Active Substance: ENZALUTAMIDE
     Route: 048
     Dates: start: 20210925, end: 202202
  3. PREGABALIN [Suspect]
     Active Substance: PREGABALIN
     Indication: Product used for unknown indication
     Dosage: UNK UNK, UNKNOWN FREQ.
     Route: 065
     Dates: start: 202109, end: 20210925

REACTIONS (13)
  - General physical health deterioration [Not Recovered/Not Resolved]
  - Discouragement [Not Recovered/Not Resolved]
  - Dizziness [Not Recovered/Not Resolved]
  - Decreased appetite [Recovering/Resolving]
  - Asthenia [Recovering/Resolving]
  - Disorientation [Recovering/Resolving]
  - Oropharyngeal pain [Not Recovered/Not Resolved]
  - Depressed mood [Unknown]
  - Decreased appetite [Not Recovered/Not Resolved]
  - Decreased appetite [Not Recovered/Not Resolved]
  - Bedridden [Not Recovered/Not Resolved]
  - Dysphagia [Not Recovered/Not Resolved]
  - Odynophagia [Not Recovered/Not Resolved]

NARRATIVE: CASE EVENT DATE: 20200101
